FAERS Safety Report 5835117-8 (Version None)
Quarter: 2008Q3

REPORT INFORMATION
  Report Type: 
  Country: None (occurrence: None)
  Receive Date: 20080805
  Receipt Date: 20080805
  Transmission Date: 20090109
  Serious: No
  Sender: FDA-Public Use
  Company Number: None

PATIENT
  Sex: Female
  Weight: 45.3597 kg

DRUGS (2)
  1. ACTONEL [Suspect]
     Indication: OSTEOPOROSIS
     Dosage: ONE TABLET ONCE WEEKLY PO
     Route: 048
     Dates: start: 20080701, end: 20080703
  2. ACTONEL [Suspect]
     Indication: OSTEOPOROSIS
     Dosage: ONE TABLET ONCE WEEKLY PO
     Route: 048
     Dates: start: 20080801, end: 20080803

REACTIONS (4)
  - ABDOMINAL PAIN UPPER [None]
  - HYPOPHAGIA [None]
  - PYREXIA [None]
  - TREMOR [None]
